FAERS Safety Report 6238918-X (Version None)
Quarter: 2009Q2

REPORT INFORMATION
  Report Type: 
  Country: None (occurrence: None)
  Receive Date: 20090622
  Receipt Date: 20090610
  Transmission Date: 20091009
  Serious: Yes (Other)
  Sender: FDA-Public Use
  Company Number: GB-PFIZER INC-2009225105

PATIENT
  Age: 42 Year

DRUGS (3)
  1. GABAPENTIN [Suspect]
     Indication: CHEST PAIN
     Dosage: 300 MG, UNK
     Route: 048
  2. GABAPENTIN [Suspect]
     Indication: PARAPLEGIA
  3. AMITRIPTYLINE HYDROCHLORIDE [Concomitant]
     Indication: PAIN
     Dosage: 25 MG, UNK
     Dates: start: 20090212

REACTIONS (1)
  - PRIAPISM [None]
